FAERS Safety Report 5317126-0 (Version None)
Quarter: 2007Q2

REPORT INFORMATION
  Report Type: 
  Country: None (occurrence: None)
  Receive Date: 20070504
  Receipt Date: 20070419
  Transmission Date: 20071010
  Serious: Yes (Other)
  Sender: FDA-Public Use
  Company Number: US-SHR-US-2007-009422

PATIENT
  Age: 51 Year
  Sex: Male
  Weight: 63 kg

DRUGS (5)
  1. BETASERON [Suspect]
     Indication: SECONDARY PROGRESSIVE MULTIPLE SCLEROSIS
     Dosage: 2 MIU, EVERY 2D
     Route: 058
     Dates: start: 20070216
  2. BETASERON [Suspect]
     Dosage: 8 MIU, EVERY 2D
     Route: 058
  3. ATENOLOL [Concomitant]
     Indication: BLOOD PRESSURE
     Dosage: 25 MG, UNK
     Route: 048
     Dates: start: 20050101
  4. DETROL LA [Concomitant]
     Dosage: 4 MG, UNK
     Route: 048
     Dates: start: 20070301
  5. ACTONEL [Concomitant]
     Dosage: 35 MG, UNK
     Route: 048
     Dates: start: 20040201

REACTIONS (5)
  - ASTHENIA [None]
  - BLOOD PRESSURE INCREASED [None]
  - FLUSHING [None]
  - INJECTION SITE ERYTHEMA [None]
  - PERSONALITY CHANGE [None]
